FAERS Safety Report 18733117 (Version 1)
Quarter: 2021Q1

REPORT INFORMATION
  Report Type: Spontaneous
  Country: CN (occurrence: CN)
  Receive Date: 20210112
  Receipt Date: 20210112
  Transmission Date: 20210419
  Serious: Yes (Other)
  Sender: FDA-Public Use
  Company Number: CN-BAXTER-2021BAX000538

PATIENT
  Age: 42 Year
  Sex: Female
  Weight: 53.5 kg

DRUGS (9)
  1. ENDOXAN [Suspect]
     Active Substance: CYCLOPHOSPHAMIDE
     Indication: HORMONE RECEPTOR POSITIVE BREAST CANCER
  2. DOXORUBICIN LIPOSOME [Suspect]
     Active Substance: DOXORUBICIN
     Indication: BREAST CANCER STAGE III
     Dosage: DOXORUBICIN LIPOSOME 50 MG (SELF?PREPARED DRUG) + 5% GS 250ML
     Route: 041
     Dates: start: 20201123
  3. SODIUM CHLORIDE. [Suspect]
     Active Substance: SODIUM CHLORIDE
     Indication: MEDICATION DILUTION
     Dosage: ENDOXAN 0.95 G + SODIUM CHLORIDE 100 ML
     Route: 041
     Dates: start: 20201123, end: 20201123
  4. ENDOXAN [Suspect]
     Active Substance: CYCLOPHOSPHAMIDE
     Indication: INVASIVE BREAST CARCINOMA
     Dosage: DOSE RE?INTRODUCED; (VEHICLE CRYSTAL) ENDOXAN + SODIUM CHLORIDE
     Route: 041
  5. DOXORUBICIN LIPOSOME [Suspect]
     Active Substance: DOXORUBICIN
     Indication: HORMONE RECEPTOR POSITIVE BREAST CANCER
  6. DOXORUBICIN LIPOSOME [Suspect]
     Active Substance: DOXORUBICIN
     Indication: INVASIVE BREAST CARCINOMA
  7. SODIUM CHLORIDE. [Suspect]
     Active Substance: SODIUM CHLORIDE
     Dosage: DOSE RE?INTRODUCED; ENDOXAN + SODIUM CHLORIDE
     Route: 041
  8. ENDOXAN [Suspect]
     Active Substance: CYCLOPHOSPHAMIDE
     Indication: BREAST CANCER STAGE III
     Dosage: (VEHICLE CRYSTAL) ENDOXAN 0.95 G + SODIUM CHLORIDE 100 ML
     Route: 041
     Dates: start: 20201123, end: 20201123
  9. 5% GLUCOSE  INJECTION [Suspect]
     Active Substance: DEXTROSE
     Indication: MEDICATION DILUTION
     Dosage: DOXORUBICIN LIPOSOME 50 MG (SELF?PREPARED DRUG) + 5% GS 250ML
     Route: 041
     Dates: start: 20201123

REACTIONS (2)
  - Neutrophil count decreased [Unknown]
  - Leukopenia [Unknown]

NARRATIVE: CASE EVENT DATE: 20201212
